FAERS Safety Report 16286421 (Version 1)
Quarter: 2019Q2

REPORT INFORMATION
  Report Type: Spontaneous
  Country: US (occurrence: US)
  Receive Date: 20190507
  Receipt Date: 20190507
  Transmission Date: 20190711
  Serious: Yes (Disabling)
  Sender: FDA-Public Use
  Company Number: None

PATIENT
  Age: 70 Year
  Sex: Male
  Weight: 94.5 kg

DRUGS (4)
  1. LISINOPRIL. [Concomitant]
     Active Substance: LISINOPRIL
  2. NORVASC [Concomitant]
     Active Substance: AMLODIPINE BESYLATE
  3. ELIQUEST [Concomitant]
  4. ELIQUIS [Suspect]
     Active Substance: APIXABAN
     Indication: PORTAL VEIN THROMBOSIS
     Dosage: ?          QUANTITY:180 TABLET(S);?

REACTIONS (3)
  - Acne [None]
  - Rash [None]
  - Furuncle [None]

NARRATIVE: CASE EVENT DATE: 20190505
